FAERS Safety Report 6410433-X (Version None)
Quarter: 2009Q4

REPORT INFORMATION
  Report Type: 
  Country: None (occurrence: None)
  Receive Date: 20091022
  Receipt Date: 20090929
  Transmission Date: 20100525
  Serious: No
  Sender: FDA-Public Use
  Company Number: US-BAYER-200915106BCC

PATIENT
  Age: 54 Year
  Sex: Male
  Weight: 112 kg

DRUGS (5)
  1. ALEVE (CAPLET) [Suspect]
     Indication: MYALGIA
     Dosage: TOTAL DAILY DOSE: 440 MG  UNIT DOSE: 220 MG
     Route: 048
     Dates: start: 20090929
  2. CRESTOR [Concomitant]
     Route: 065
  3. ASPIRIN [Concomitant]
     Route: 065
  4. XANAX [Concomitant]
     Route: 065
  5. ONE A DAY [Concomitant]
     Route: 065

REACTIONS (1)
  - DIZZINESS [None]
